FAERS Safety Report 5339233-9 (Version None)
Quarter: 2007Q2

REPORT INFORMATION
  Report Type: 
  Country: None (occurrence: None)
  Receive Date: 20070329
  Receipt Date: 20070214
  Transmission Date: 20071010
  Serious: Yes (Other)
  Sender: FDA-Public Use
  Company Number: A03200701341

PATIENT
  Age: 83 Year
  Sex: Male

DRUGS (15)
  1. AMBIEN [Suspect]
     Indication: INSOMNIA
     Dosage: 6.25 MG QD - ORAL
     Route: 048
  2. AMBIEN [Suspect]
     Indication: INSOMNIA
     Dosage: 12.5 MG QD - ORAL
     Route: 048
  3. AMBIEN [Suspect]
     Indication: INSOMNIA
     Dosage: ORAL
     Route: 048
  4. WARFARIN SODIUM [Concomitant]
  5. IRON [Concomitant]
  6. ASCORBIC ACID [Concomitant]
  7. VITAMIN B-12 [Concomitant]
  8. LORAZEPAM [Concomitant]
  9. DULOXETINE [Concomitant]
  10. TAMSULOSIN HCL [Concomitant]
  11. MULTIVITAMIN [Concomitant]
  12. PANTOPRAZOLE SODIUM [Concomitant]
  13. FERROUS SULFATE [Concomitant]
  14. RIVASTIGMINE TARTRATE [Concomitant]
  15. FOLIC ACID [Concomitant]

REACTIONS (5)
  - DRUG INEFFECTIVE [None]
  - HEART RATE INCREASED [None]
  - HYPNOPOMPIC HALLUCINATION [None]
  - NIGHTMARE [None]
  - PALPITATIONS [None]
